FAERS Safety Report 20778489 (Version 1)
Quarter: 2022Q2

REPORT INFORMATION
  Report Type: Spontaneous
  Country: US (occurrence: US)
  Receive Date: 20220503
  Receipt Date: 20220503
  Transmission Date: 20220721
  Serious: No
  Sender: FDA-Public Use
  Company Number: US-AMNEAL PHARMACEUTICALS-2021-AMRX-03615

PATIENT
  Sex: Male
  Weight: 5.442 kg

DRUGS (3)
  1. VIGABATRIN [Suspect]
     Active Substance: VIGABATRIN
     Indication: Infantile spasms
     Dosage: 9 MILLILITER, 2X/DAY
     Route: 048
     Dates: start: 202105
  2. VIGABATRIN [Suspect]
     Active Substance: VIGABATRIN
     Dosage: MIX 2 PACKET IN 20 ML OF COLD WATER AND GIVE 2 /DAY
     Route: 065
  3. VITAMINS NOS [Concomitant]
     Active Substance: VITAMINS
     Indication: Product used for unknown indication
     Dosage: UNK
     Route: 065

REACTIONS (3)
  - Drug effect less than expected [Not Recovered/Not Resolved]
  - Vomiting [Unknown]
  - Product dose omission issue [Unknown]
